FAERS Safety Report 19134683 (Version 1)
Quarter: 2021Q2

REPORT INFORMATION
  Report Type: Spontaneous
  Country: US (occurrence: US)
  Receive Date: 20210414
  Receipt Date: 20210414
  Transmission Date: 20210717
  Serious: Yes (Disabling)
  Sender: FDA-Public Use
  Company Number: None

PATIENT
  Age: 41 Year
  Sex: Female
  Weight: 52.16 kg

DRUGS (3)
  1. PARAGARD T 380A [Suspect]
     Active Substance: COPPER
  2. WOMEN^S ONE?A?DAY MULTIVITAMIN [Concomitant]
     Active Substance: VITAMINS
  3. OMEGA?3 ACIDS [Concomitant]
     Active Substance: OMEGA-3 FATTY ACIDS

REACTIONS (3)
  - Device breakage [None]
  - Complication of device removal [None]
  - Embedded device [None]

NARRATIVE: CASE EVENT DATE: 20210402
